FAERS Safety Report 9410918 (Version 1)
Quarter: 2013Q3

REPORT INFORMATION
  Report Type: Spontaneous
  Country: US (occurrence: US)
  Receive Date: 20130719
  Receipt Date: 20130719
  Transmission Date: 20140515
  Serious: No
  Sender: FDA-Public Use
  Company Number: US-PFIZER INC-2013212008

PATIENT
  Age: 41 Year
  Sex: Female
  Weight: 78.46 kg

DRUGS (3)
  1. LYRICA [Suspect]
     Indication: NEUROPATHY PERIPHERAL
     Dosage: 150 MG (2 CAPSULES OF 75 MG ), 2X/DAY
     Dates: start: 201306
  2. LYRICA [Suspect]
     Indication: HERPES ZOSTER
  3. GABAPENTIN [Concomitant]
     Dosage: 800 MG, UNK

REACTIONS (4)
  - Drug dose omission [Unknown]
  - Insomnia [Unknown]
  - Muscle twitching [Unknown]
  - Pain [Unknown]
